FAERS Safety Report 6460452-2 (Version None)
Quarter: 2009Q4

REPORT INFORMATION
  Report Type: 
  Country: None (occurrence: None)
  Receive Date: 20091130
  Receipt Date: 20091117
  Transmission Date: 20100525
  Serious: Yes (Other)
  Sender: FDA-Public Use
  Company Number: AU-ROCHE-669663

PATIENT
  Sex: Female
  Weight: 109.1 kg

DRUGS (6)
  1. PEGASYS [Suspect]
     Indication: HEPATITIS C
     Dosage: DRUG: PEGASYS RBV
     Route: 058
     Dates: start: 20090722
  2. RIBAVIRIN [Suspect]
     Indication: HEPATITIS C
     Route: 048
     Dates: start: 20090722
  3. CYMBALTA [Concomitant]
     Dosage: DRUG: SIMBALTA; FREQUENCY: DAILY
  4. XANAX [Concomitant]
     Dosage: FREQUENCY: DAILY
  5. ACETAMINOPHEN W/ CODEINE [Concomitant]
     Dosage: FREQUENCY: DAILY
  6. SERENACE [Concomitant]
     Dosage: FREQUENCY: DAILY

REACTIONS (13)
  - ALOPECIA [None]
  - ASTHENIA [None]
  - CONVULSION [None]
  - DEPRESSION [None]
  - DIARRHOEA [None]
  - DIZZINESS [None]
  - EMOTIONAL DISORDER [None]
  - FATIGUE [None]
  - FEELING ABNORMAL [None]
  - HEADACHE [None]
  - INSOMNIA [None]
  - NAUSEA [None]
  - PHOTOPSIA [None]
